FAERS Safety Report 15454149 (Version 3)
Quarter: 2018Q4

REPORT INFORMATION
  Report Type: Spontaneous
  Country: US (occurrence: US)
  Receive Date: 20181002
  Receipt Date: 20181116
  Transmission Date: 20190204
  Serious: Yes (Disabling)
  Sender: FDA-Public Use
  Company Number: US-AMGEN-USASP2018134385

PATIENT
  Age: 59 Year
  Sex: Female
  Weight: 60 kg

DRUGS (5)
  1. PARSABIV [Suspect]
     Active Substance: ETELCALCETIDE HYDROCHLORIDE
     Dosage: 10 MG, UNK
     Route: 042
     Dates: start: 20180911, end: 20181013
  2. VENOFER [Concomitant]
     Active Substance: IRON SUCROSE
     Dosage: UNK
  3. EPO [Concomitant]
     Active Substance: ERYTHROPOIETIN
     Dosage: UNK
  4. PARSABIV [Suspect]
     Active Substance: ETELCALCETIDE HYDROCHLORIDE
     Indication: HYPERPARATHYROIDISM SECONDARY
     Dosage: 5 MG, UNK
     Route: 042
     Dates: start: 20180815
  5. HECTOROL [Concomitant]
     Active Substance: DOXERCALCIFEROL
     Dosage: UNK

REACTIONS (3)
  - Breast enlargement [Unknown]
  - Breast mass [Not Recovered/Not Resolved]
  - Arteriovenous fistula site complication [Not Recovered/Not Resolved]

NARRATIVE: CASE EVENT DATE: 2018
